FAERS Safety Report 5477887-7 (Version None)
Quarter: 2007Q4

REPORT INFORMATION
  Report Type: 
  Country: None (occurrence: None)
  Receive Date: 20071005
  Receipt Date: 20071002
  Transmission Date: 20080405
  Serious: Yes (Life-Threatening)
  Sender: FDA-Public Use
  Company Number: PHEH2007US13083

PATIENT
  Age: 64 Year
  Sex: Female
  Weight: 77.097 kg

DRUGS (4)
  1. ATENOLOL [Concomitant]
     Indication: HYPERTENSION
     Dosage: 25 MG, QD
     Route: 048
  2. ACTOS [Concomitant]
     Indication: TYPE 2 DIABETES MELLITUS
     Dosage: 15MG QAM, 7.5MG QPM
     Route: 048
  3. PHOSLO [Concomitant]
     Indication: RENAL FAILURE
     Dosage: 4 TABS DAILY
     Route: 048
  4. EXFORGE [Suspect]
     Indication: HYPERTENSION
     Dosage: 5/160MG, QD
     Route: 048
     Dates: start: 20070814

REACTIONS (5)
  - ATRIOVENTRICULAR BLOCK COMPLETE [None]
  - BRADYCARDIA [None]
  - CARDIAC PACEMAKER INSERTION [None]
  - GOUT [None]
  - HYPERLIPIDAEMIA [None]
